FAERS Safety Report 8311800-X (Version None)
Quarter: 2012Q1

REPORT INFORMATION
  Report Type: 
  Country: None (occurrence: None)
  Receive Date: 20120315
  Receipt Date: 20110525
  Transmission Date: 20120608
  Serious: Yes (Other)
  Sender: FDA-Public Use
  Company Number: PHHY2011US44874

PATIENT
  Age: 57 Year
  Sex: Female

DRUGS (6)
  1. NEURONTIN [Concomitant]
  2. CALCIUM CARBONATE [Concomitant]
  3. GILENYA [Suspect]
     Dosage: QD, ORAL
     Route: 048
  4. BACLOFEN [Concomitant]
  5. VITAMIN D [Concomitant]
  6. MULTIVITAMINS (ASCORBIC ACID, ERGOCALCIFEROL, FOLIC ACID, NICOTINAMIDE [Concomitant]

REACTIONS (1)
  - HEPATIC ENZYME INCREASED [None]
